FAERS Safety Report 16474604 (Version 3)
Quarter: 2020Q2

REPORT INFORMATION
  Report Type: Report from Study
  Country: DE (occurrence: DE)
  Receive Date: 20190625
  Receipt Date: 20200417
  Transmission Date: 20200713
  Serious: Yes (Life-Threatening, Hospitalization)
  Sender: FDA-Public Use
  Company Number: DE-ACTELION-A-CH2019-185544

PATIENT
  Age: 52 Year
  Sex: Female
  Weight: 86 kg

DRUGS (23)
  1. ADEMPAS [Concomitant]
     Active Substance: RIOCIGUAT
     Dosage: 3 DF, QD
     Dates: start: 20160622
  2. MAGNESIUM [Concomitant]
     Active Substance: MAGNESIUM
     Dosage: UNK
     Route: 048
  3. FOLSAN [Concomitant]
     Active Substance: FOLIC ACID
     Dosage: UNK
     Route: 048
  4. INFLIXIMAB [Concomitant]
     Active Substance: INFLIXIMAB
     Dosage: UNK
  5. ADEMPAS [Concomitant]
     Active Substance: RIOCIGUAT
     Dosage: 1 DF, QD
     Dates: start: 201601, end: 201604
  6. BYETTA [Concomitant]
     Active Substance: EXENATIDE
     Indication: TYPE 2 DIABETES MELLITUS
     Dosage: UNK
     Route: 048
  7. MTX [Concomitant]
     Active Substance: METHOTREXATE SODIUM
     Indication: LUNG DISORDER
     Dosage: UNK
     Route: 058
  8. ASPIRIN. [Concomitant]
     Active Substance: ASPIRIN
     Dosage: UNK
     Route: 048
  9. OPSUMIT [Suspect]
     Active Substance: MACITENTAN
     Indication: PULMONARY ARTERIAL HYPERTENSION
     Dosage: 10 MG, QD
     Route: 048
     Dates: start: 201405
  10. UPTRAVI [Suspect]
     Active Substance: SELEXIPAG
     Indication: PULMONARY ARTERIAL HYPERTENSION
     Dosage: 200 MCG, QD
     Route: 048
     Dates: start: 20180424
  11. UPTRAVI [Suspect]
     Active Substance: SELEXIPAG
     Dosage: 800 MCG, QD
     Route: 048
     Dates: start: 2018
  12. UPTRAVI [Suspect]
     Active Substance: SELEXIPAG
     Dosage: 400 MCG, QD
     Route: 048
     Dates: start: 2018
  13. ADEMPAS [Concomitant]
     Active Substance: RIOCIGUAT
     Dosage: 1.5 DF, QD
     Dates: start: 201604, end: 201606
  14. PANTOZOL [Concomitant]
     Active Substance: PANTOPRAZOLE SODIUM
     Dosage: UNK
     Route: 048
  15. FUROSEMIDE. [Concomitant]
     Active Substance: FUROSEMIDE
     Dosage: UNK
     Route: 048
  16. UPTRAVI [Suspect]
     Active Substance: SELEXIPAG
     Dosage: 400 MCG
     Route: 048
     Dates: start: 2018
  17. ADEMPAS [Concomitant]
     Active Substance: RIOCIGUAT
     Dosage: 2 DF, QD
     Dates: start: 20160601, end: 20160622
  18. MOVICOL [Concomitant]
     Active Substance: POLYETHYLENE GLYCOL 3350\POTASSIUM CHLORIDE\SODIUM BICARBONATE\SODIUM CHLORIDE
     Indication: CONSTIPATION
     Dosage: UNK, PRN
     Route: 048
  19. VENLAFAXIN [Concomitant]
     Active Substance: VENLAFAXINE HYDROCHLORIDE
     Indication: DEPRESSION
     Dosage: UNK
     Route: 048
  20. DECORTIN [Concomitant]
     Active Substance: PREDNISONE
     Indication: LUNG DISORDER
     Dosage: UNK
     Route: 048
  21. FOSTER [Concomitant]
     Active Substance: BECLOMETHASONE\FORMOTEROL
     Indication: CHRONIC OBSTRUCTIVE PULMONARY DISEASE
     Dosage: UNK
     Route: 055
  22. SPIRIVA [Concomitant]
     Active Substance: TIOTROPIUM BROMIDE MONOHYDRATE
     Indication: CHRONIC OBSTRUCTIVE PULMONARY DISEASE
     Dosage: UNK
     Route: 055
  23. OXYGEN. [Concomitant]
     Active Substance: OXYGEN
     Indication: DYSPNOEA
     Dosage: UNK
     Route: 055
     Dates: start: 2001

REACTIONS (7)
  - Catheterisation cardiac [Recovered/Resolved]
  - Cerebral ischaemia [Recovered/Resolved]
  - Hospitalisation [Recovered/Resolved]
  - Paraesthesia [Recovered/Resolved]
  - Thrombolysis [Recovered/Resolved]
  - Coronary artery stenosis [Unknown]
  - Headache [Recovered/Resolved]

NARRATIVE: CASE EVENT DATE: 2018
